FAERS Safety Report 8618602-5 (Version None)
Quarter: 2012Q3

REPORT INFORMATION
  Report Type: 
  Country: None (occurrence: None)
  Receive Date: 20120824
  Receipt Date: 20120821
  Transmission Date: 20120928
  Serious: No
  Sender: FDA-Public Use
  Company Number: US-PFIZER INC-2012195145

PATIENT
  Age: 54 Year
  Sex: Female

DRUGS (3)
  1. DEPAKENE [Concomitant]
     Indication: CONVULSION
     Dosage: 250 MG, 4X/DAY
  2. DILANTIN [Suspect]
     Dosage: UNK
     Route: 048
  3. DILANTIN [Suspect]
     Indication: CONVULSION
     Dosage: 100 MG, UNK
     Route: 048
     Dates: start: 19810101

REACTIONS (3)
  - POOR QUALITY DRUG ADMINISTERED [None]
  - FEELING ABNORMAL [None]
  - CAPSULE PHYSICAL ISSUE [None]
